FAERS Safety Report 4808618-9 (Version None)
Quarter: 2005Q4

REPORT INFORMATION
  Report Type: 
  Country: None (occurrence: None)
  Receive Date: 20051021
  Receipt Date: 20051021
  Transmission Date: 20060501
  Serious: Yes (Hospitalization)
  Sender: FDA-Public Use
  Company Number: None

PATIENT
  Age: 18 Year
  Sex: Male
  Weight: 80.7 kg

DRUGS (6)
  1. ABELCET [Suspect]
     Indication: ARTHROPATHY
     Dosage: 5MG/KG-400MG- ONCE DAILY IV DRIP
     Route: 041
     Dates: start: 20050731, end: 20050808
  2. ABELCET [Suspect]
     Indication: FUNGAL INFECTION
     Dosage: 5MG/KG-400MG- ONCE DAILY IV DRIP
     Route: 041
     Dates: start: 20050731, end: 20050808
  3. ACETAMINOPHEN [Concomitant]
  4. DIPHENHYDRAMINE HCL [Concomitant]
  5. METOCLOPRAMIDE [Concomitant]
  6. FAMOTIDINE [Concomitant]

REACTIONS (1)
  - NORMOCHROMIC NORMOCYTIC ANAEMIA [None]
